FAERS Safety Report 8369600-0 (Version None)
Quarter: 2012Q2

REPORT INFORMATION
  Report Type: 
  Country: None (occurrence: None)
  Receive Date: 20120517
  Receipt Date: 20120517
  Transmission Date: 20120825
  Serious: Yes (Other)
  Sender: FDA-Public Use
  Company Number: None

PATIENT
  Age: 55 Year
  Sex: Male
  Weight: 81.6475 kg

DRUGS (1)
  1. CELEBREX [Suspect]
     Indication: ARTHRITIS
     Dosage: 1 AS NEEDED -1/DAY- PO
     Route: 048
     Dates: start: 20120409, end: 20120511

REACTIONS (2)
  - RASH PRURITIC [None]
  - BLISTER [None]
